FAERS Safety Report 13477419 (Version 1)
Quarter: 2017Q2

REPORT INFORMATION
  Report Type: Spontaneous
  Country: US (occurrence: US)
  Receive Date: 20170425
  Receipt Date: 20170425
  Transmission Date: 20170830
  Serious: Yes (Life-Threatening, Hospitalization, Disabling, Other)
  Sender: FDA-Public Use
  Company Number: None

PATIENT
  Age: 27 Year
  Sex: Female
  Weight: 39.2 kg

DRUGS (1)
  1. LAMOTRIGINE. [Suspect]
     Active Substance: LAMOTRIGINE
     Indication: PRODUCT USED FOR UNKNOWN INDICATION
     Route: 048
     Dates: start: 20160208, end: 20160210

REACTIONS (5)
  - Hepatitis fulminant [None]
  - Rash maculo-papular [None]
  - Acute hepatic failure [None]
  - Drug reaction with eosinophilia and systemic symptoms [None]
  - Liver transplant [None]

NARRATIVE: CASE EVENT DATE: 20160208
